FAERS Safety Report 23350063 (Version 1)
Quarter: 2023Q4

REPORT INFORMATION
  Report Type: Report from Study
  Country: US (occurrence: US)
  Receive Date: 20231229
  Receipt Date: 20231229
  Transmission Date: 20240110
  Serious: Yes (Hospitalization, Other)
  Sender: FDA-Public Use
  Company Number: US-UCBSA-2023060587

PATIENT
  Age: 32 Year
  Sex: Female

DRUGS (1)
  1. ROZANOLIXIZUMAB [Suspect]
     Active Substance: ROZANOLIXIZUMAB
     Indication: Myasthenia gravis
     Dosage: 560MG (4ML) VIA SUBCUTANEOUS INFUSION ONCE WEEKLY FOR 6 WEEKS
     Dates: start: 20231208, end: 20231209

REACTIONS (4)
  - Meningitis [Unknown]
  - Headache [Unknown]
  - Musculoskeletal stiffness [Unknown]
  - Photophobia [Unknown]

NARRATIVE: CASE EVENT DATE: 20231209
